FAERS Safety Report 6637702-2 (Version None)
Quarter: 2010Q1

REPORT INFORMATION
  Report Type: 
  Country: None (occurrence: None)
  Receive Date: 20100315
  Receipt Date: 20100315
  Transmission Date: 20100710
  Serious: Yes (Death, Hospitalization)
  Sender: FDA-Public Use
  Company Number: None

PATIENT

DRUGS (2)
  1. HEPARIN SODIUM [Suspect]
     Indication: ACUTE CORONARY SYNDROME
     Dates: start: 20100222, end: 20100312
  2. HEPARIN SODIUM [Suspect]
     Indication: PULMONARY EMBOLISM
     Dates: start: 20100222, end: 20100312

REACTIONS (2)
  - HEPARIN-INDUCED THROMBOCYTOPENIA [None]
  - PRODUCT QUALITY ISSUE [None]
